FAERS Safety Report 7864938-5 (Version None)
Quarter: 2011Q4

REPORT INFORMATION
  Report Type: 
  Country: None (occurrence: None)
  Receive Date: 20111028
  Receipt Date: 20111017
  Transmission Date: 20120403
  Serious: Yes (Life-Threatening, Hospitalization, Other)
  Sender: FDA-Public Use
  Company Number: GB-RANBAXY-2011R1-48808

PATIENT
  Sex: Male
  Weight: 12.5 kg

DRUGS (8)
  1. FLUCONAZOLE [Interacting]
     Indication: RENAL TRANSPLANT
  2. FLUCONAZOLE [Interacting]
     Indication: IMMUNOSUPPRESSION
     Dosage: UNK
     Route: 065
  3. FLUCONAZOLE [Interacting]
     Dosage: UNK
     Route: 033
  4. AZATHIOPRINE [Interacting]
     Indication: RENAL TRANSPLANT
     Dosage: UNK, 1 DAYS
     Route: 065
  5. FLUCONAZOLE [Interacting]
     Indication: CANDIDIASIS
  6. FLUCONAZOLE [Suspect]
     Indication: FUNGAL PERITONITIS
     Dosage: 3 MG/KG, 1DAYS
     Route: 048
  7. FLUCONAZOLE [Interacting]
     Indication: PRODUCT USED FOR UNKNOWN INDICATION
     Dosage: 3MG/KG, 1DAYS
     Route: 042
  8. METHYLPREDNISOLONE [Interacting]
     Indication: RENAL TRANSPLANT
     Dosage: UNK
     Route: 065

REACTIONS (16)
  - POTENTIATING DRUG INTERACTION [None]
  - STRABISMUS [None]
  - DRUG INTERACTION [None]
  - MENTAL STATUS CHANGES [None]
  - LOSS OF CONSCIOUSNESS [None]
  - COMPLICATIONS OF TRANSPLANTED KIDNEY [None]
  - SEPTIC SHOCK [None]
  - ASCITES [None]
  - GENERAL PHYSICAL HEALTH DETERIORATION [None]
  - CANDIDA SEPSIS [None]
  - PERITONEAL CANDIDIASIS [None]
  - DRUG LEVEL INCREASED [None]
  - FUNGAL PERITONITIS [None]
  - TOXICITY TO VARIOUS AGENTS [None]
  - IMMUNOSUPPRESSANT DRUG LEVEL INCREASED [None]
  - DEPRESSED LEVEL OF CONSCIOUSNESS [None]
